FAERS Safety Report 9333482 (Version 1)
Quarter: 2013Q2

REPORT INFORMATION
  Report Type: Spontaneous
  Country: US (occurrence: US)
  Receive Date: 20130606
  Receipt Date: 20130606
  Transmission Date: 20140414
  Serious: No
  Sender: FDA-Public Use
  Company Number: US-AMGEN-USASP2012076828

PATIENT
  Age: 65 Year
  Sex: Male

DRUGS (8)
  1. XGEVA [Suspect]
     Indication: METASTASES TO BONE
     Dosage: UNK
  2. CASODEX [Concomitant]
  3. LIBRAX                             /00033301/ [Concomitant]
  4. CARDIZEM                           /00489701/ [Concomitant]
  5. CALCIUM                            /00060701/ [Concomitant]
  6. CITRUS AURANTIUM [Concomitant]
  7. VITAMINS                           /00067501/ [Concomitant]
  8. CRESTOR [Concomitant]

REACTIONS (4)
  - Diarrhoea [Unknown]
  - Fall [Unknown]
  - Joint injury [Unknown]
  - Excoriation [Unknown]
